FAERS Safety Report 15297195 (Version 1)
Quarter: 2018Q3

REPORT INFORMATION
  Report Type: Spontaneous
  Country: US (occurrence: US)
  Receive Date: 20180820
  Receipt Date: 20180820
  Transmission Date: 20181010
  Serious: Yes (Life-Threatening, Hospitalization, Other)
  Sender: FDA-Public Use
  Company Number: US-SA-2018SA221947

PATIENT
  Age: 35 Year
  Sex: Male

DRUGS (4)
  1. DOCETAXEL. [Suspect]
     Active Substance: DOCETAXEL
     Indication: METASTASES TO LUNG
     Dosage: 75 MG/M2
  2. GEMCITABINE HYDROCHLORIDE. [Suspect]
     Active Substance: GEMCITABINE HYDROCHLORIDE
     Indication: METASTASES TO LUNG
     Dosage: 900 MG/M2
  3. EPIRUBICIN [Suspect]
     Active Substance: EPIRUBICIN
     Indication: METASTASIS
     Dosage: 30 MG/M2,D1?3
  4. IFOSFAMIDE. [Suspect]
     Active Substance: IFOSFAMIDE
     Indication: METASTASES TO LUNG
     Dosage: 1500 MG/M2, D1?4

REACTIONS (10)
  - Thrombocytopenia [Unknown]
  - Haemoptysis [Unknown]
  - Anaemia [Unknown]
  - Treatment failure [Unknown]
  - Nausea [Unknown]
  - Leukopenia [Unknown]
  - Dyspnoea [Unknown]
  - Cough [Unknown]
  - Palpitations [Unknown]
  - Drug ineffective [Unknown]
